FAERS Safety Report 22290863 (Version 2)
Quarter: 2023Q2

REPORT INFORMATION
  Report Type: Report from Study
  Country: US (occurrence: US)
  Receive Date: 20230506
  Receipt Date: 20230607
  Transmission Date: 20230722
  Serious: No
  Sender: FDA-Public Use
  Company Number: US-002147023-NVSC2023US100169

PATIENT
  Sex: Male

DRUGS (1)
  1. ENTRESTO [Suspect]
     Active Substance: SACUBITRIL\VALSARTAN
     Indication: Cardiac failure
     Dosage: 24 MG, BID (24/26MG) (LOT OR BATCH NUMBER PHARMACY BOTTLE)
     Route: 048
     Dates: start: 20230415

REACTIONS (3)
  - Arthropod bite [Unknown]
  - Decreased appetite [Unknown]
  - Pruritus [Unknown]
